FAERS Safety Report 5688484-2 (Version None)
Quarter: 2008Q1

REPORT INFORMATION
  Report Type: 
  Country: None (occurrence: None)
  Receive Date: 20080331
  Receipt Date: 20080318
  Transmission Date: 20080703
  Serious: Yes (Hospitalization)
  Sender: FDA-Public Use
  Company Number: JP-ELI_LILLY_AND_COMPANY-JP200803005464

PATIENT
  Sex: Male

DRUGS (1)
  1. PEMETREXED [Suspect]
     Route: 042

REACTIONS (1)
  - INTESTINAL PERFORATION [None]
